FAERS Safety Report 13625274 (Version 1)
Quarter: 2017Q2

REPORT INFORMATION
  Report Type: Spontaneous
  Country: US (occurrence: US)
  Receive Date: 20170607
  Receipt Date: 20170607
  Transmission Date: 20170830
  Serious: No
  Sender: FDA-Public Use
  Company Number: None

PATIENT
  Age: 77 Year
  Sex: Male

DRUGS (1)
  1. ZYTIGA [Suspect]
     Active Substance: ABIRATERONE ACETATE

REACTIONS (5)
  - Stress [None]
  - Bladder neoplasm [None]
  - Middle insomnia [None]
  - Death of relative [None]
  - Emotional disorder [None]

NARRATIVE: CASE EVENT DATE: 20170606
